FAERS Safety Report 24442521 (Version 2)
Quarter: 2024Q4

REPORT INFORMATION
  Report Type: Spontaneous
  Country: IQ (occurrence: IQ)
  Receive Date: 20241016
  Receipt Date: 20241017
  Transmission Date: 20250114
  Serious: No
  Sender: ROCHE
  Company Number: IQ-ROCHE-3550987

PATIENT
  Age: 22 Year
  Sex: Male
  Weight: 65.0 kg

DRUGS (1)
  1. HEMLIBRA [Suspect]
     Active Substance: EMICIZUMAB-KXWH
     Indication: Factor VIII deficiency
     Route: 058
     Dates: start: 20220301

REACTIONS (2)
  - Varicella [Recovered/Resolved with Sequelae]
  - Measles [Unknown]

NARRATIVE: CASE EVENT DATE: 20240201
